FAERS Safety Report 5493382-3 (Version None)
Quarter: 2007Q4

REPORT INFORMATION
  Report Type: 
  Country: None (occurrence: None)
  Receive Date: 20071023
  Receipt Date: 20071011
  Transmission Date: 20080405
  Serious: Yes (Life-Threatening)
  Sender: FDA-Public Use
  Company Number: FR-ROCHE-525043

PATIENT
  Age: 86 Year
  Sex: Male

DRUGS (31)
  1. VALIUM [Suspect]
     Indication: DRUG USE FOR UNKNOWN INDICATION
     Dosage: FORMULATION: INJECTABLE SOLUTION
     Route: 042
     Dates: start: 20070801, end: 20070806
  2. ZOLPIDEM TARTRATE [Suspect]
     Indication: DRUG USE FOR UNKNOWN INDICATION
     Route: 048
     Dates: start: 20070726, end: 20070806
  3. LOXAPAC [Suspect]
     Indication: DRUG USE FOR UNKNOWN INDICATION
     Route: 048
     Dates: start: 20070731, end: 20070806
  4. LOXAPAC [Suspect]
     Dosage: DOSAGE REGIMEN REPORTED AS 10 DOSES EVERY DAY.
     Route: 048
     Dates: start: 20070713, end: 20070718
  5. LOXAPAC [Suspect]
     Route: 048
     Dates: start: 20070730
  6. XATRAL [Suspect]
     Indication: DRUG USE FOR UNKNOWN INDICATION
     Route: 048
     Dates: start: 20070724, end: 20070806
  7. LIORESAL [Suspect]
     Indication: DRUG USE FOR UNKNOWN INDICATION
     Route: 048
     Dates: start: 20070803
  8. LIORESAL [Suspect]
     Dosage: DOSE REDUCED
     Route: 048
     Dates: start: 20070806
  9. ASPIRIN [Concomitant]
     Dates: start: 20070713
  10. TENORMIN [Concomitant]
     Dates: start: 20070613
  11. TENORMIN [Concomitant]
     Dates: start: 20070713, end: 20070718
  12. OMEPRAZOLE [Concomitant]
     Dates: start: 20070613
  13. LOVENOX [Concomitant]
     Dates: start: 20070613, end: 20070726
  14. RISPERDAL [Concomitant]
     Dates: start: 20070613
  15. CIFLOX [Concomitant]
     Dosage: DOSE REDUCED
     Dates: start: 20070726, end: 20070803
  16. CIFLOX [Concomitant]
     Dates: start: 20070613
  17. FORTUM [Concomitant]
     Indication: URINARY TRACT INFECTION
     Dosage: DOSE REDUCED
     Dates: start: 20070726, end: 20070803
  18. FORTUM [Concomitant]
     Dosage: INDICATION: URINARY TRACT INFECTION WITH MULTI RESISTANT PYOCYANIC.
     Dates: start: 20070613
  19. EQUANIL [Concomitant]
     Dates: start: 20070613, end: 20070613
  20. BRICANYL [Concomitant]
     Dates: start: 20070613, end: 20070713
  21. INIPOMP [Concomitant]
     Dates: start: 20070713
  22. SEROPRAM [Concomitant]
     Dates: start: 20070713
  23. LASIX [Concomitant]
     Dosage: DOSE REDUCED
     Dates: start: 20070726
  24. LASIX [Concomitant]
     Dates: start: 20070713, end: 20070718
  25. IRBESARTAN [Concomitant]
     Dates: start: 20070718
  26. TEMESTA [Concomitant]
     Dates: start: 20070718
  27. CALCIPARINE [Concomitant]
     Dosage: DOSAGE REPORTED AS 0.3 TWICE PER DAY
     Dates: start: 20070801
  28. CALCIPARINE [Concomitant]
     Dosage: DOSAGE REPORTED AS 0.25 TWICE PER DAY
     Dates: start: 20070726
  29. KARDEGIC [Concomitant]
     Dates: start: 20070727
  30. PARACETAMOL [Concomitant]
     Dosage: DOSAGE REGIMEN: 1 GRAM FOURTH PER DAY
     Dates: start: 20070801
  31. LIORESAL [Concomitant]
     Dosage: DOSAGE REGIMEN: 5 MG THIRD PER DAY.
     Dates: start: 20070803

REACTIONS (1)
  - COMA [None]
